FAERS Safety Report 9627516 (Version 5)
Quarter: 2014Q1

REPORT INFORMATION
  Report Type: Report from Study
  Country: AU (occurrence: AU)
  Receive Date: 20131016
  Receipt Date: 20140226
  Transmission Date: 20141002
  Serious: Yes (Hospitalization)
  Sender: FDA-Public Use
  Company Number: AU-ROCHE-1286180

PATIENT
  Age: 72 Year
  Sex: Male
  Weight: 75 kg

DRUGS (10)
  1. VEMURAFENIB [Suspect]
     Indication: MALIGNANT MELANOMA
     Route: 048
     Dates: start: 20130716, end: 20130901
  2. VEMURAFENIB [Suspect]
     Dosage: REDUCED DOSE
     Route: 048
     Dates: start: 20131004
  3. XALATAN [Concomitant]
     Indication: GLAUCOMA
     Route: 047
     Dates: start: 20130619
  4. MESASAL [Concomitant]
     Indication: CROHN^S DISEASE
     Route: 048
     Dates: start: 2006
  5. DIAFORMIN [Concomitant]
     Indication: TYPE 2 DIABETES MELLITUS
     Route: 048
     Dates: start: 2010
  6. ARATAC [Concomitant]
     Indication: MITRAL VALVE INCOMPETENCE
     Route: 048
     Dates: start: 2011
  7. CHLORSIG [Concomitant]
     Indication: EYE SWELLING
     Route: 047
     Dates: start: 20130816, end: 20130828
  8. CHLORSIG [Concomitant]
     Indication: EYE INFECTION
     Route: 047
     Dates: start: 20131106, end: 20131126
  9. ELOCON [Concomitant]
     Indication: RASH
     Route: 061
     Dates: start: 20130816
  10. PLACEBO [Suspect]
     Indication: METASTATIC MALIGNANT MELANOMA
     Route: 048
     Dates: start: 20130716, end: 20130828

REACTIONS (2)
  - Pyrexia [Recovered/Resolved]
  - Liver function test abnormal [Recovered/Resolved]
